FAERS Safety Report 11624848 (Version 4)
Quarter: 2016Q1

REPORT INFORMATION
  Report Type: Spontaneous
  Country: US (occurrence: US)
  Receive Date: 20151013
  Receipt Date: 20160111
  Transmission Date: 20160525
  Serious: Yes (Hospitalization)
  Sender: FDA-Public Use
  Company Number: US-VERTEX PHARMACEUTICALS-2015-004329

PATIENT
  Age: 29 Year
  Sex: Female

DRUGS (20)
  1. MARINOL [Concomitant]
     Active Substance: DRONABINOL
     Dosage: 1 DF, BID ,BEFORE MEALS
     Route: 048
     Dates: start: 20150806
  2. ALBUTEROL. [Concomitant]
     Active Substance: ALBUTEROL
     Indication: WHEEZING
     Dosage: 2 PUFFS INTO LUNGS, QID, PRN
     Route: 055
     Dates: start: 20150803
  3. ZOFRAN [Concomitant]
     Active Substance: ONDANSETRON HYDROCHLORIDE
     Indication: NAUSEA
     Dosage: 1 DF, TID, PRN
     Route: 048
     Dates: start: 20150511
  4. SINGULAIR [Concomitant]
     Active Substance: MONTELUKAST SODIUM
     Dosage: 1 DF, QD
     Route: 048
     Dates: start: 20150421
  5. NEXIUM [Concomitant]
     Active Substance: ESOMEPRAZOLE MAGNESIUM
     Dosage: 1 DF, BID
     Route: 048
     Dates: start: 20150421
  6. ZYRTEC [Concomitant]
     Active Substance: CETIRIZINE HYDROCHLORIDE
     Dosage: 1 DF, QD
     Route: 048
     Dates: start: 20150421
  7. ADVAIR HFA [Concomitant]
     Active Substance: FLUTICASONE PROPIONATE\SALMETEROL XINAFOATE
     Dosage: 1 PUFF INTO LUNGS, BID, RINSE MOUTH AFTER EACH USE
     Route: 055
     Dates: start: 20150421
  8. MAG OXIDE [Concomitant]
     Active Substance: MAGNESIUM OXIDE
     Dosage: 1 DF, BID
     Route: 048
     Dates: start: 20150421
  9. MEPHYTON [Concomitant]
     Active Substance: PHYTONADIONE
     Dosage: 1 DF, QD
     Route: 048
     Dates: start: 20150421
  10. MULTIVITAMIN [Concomitant]
     Active Substance: VITAMINS
     Dosage: 3 DF, BID
     Route: 048
     Dates: start: 20130920
  11. PULMOZYME [Concomitant]
     Active Substance: DORNASE ALFA
     Dosage: 2.5 ML, QD
     Route: 055
     Dates: start: 20150728
  12. VENTOLIN [Concomitant]
     Active Substance: ALBUTEROL SULFATE
     Dosage: 3 ML, BID
     Route: 055
     Dates: start: 20150421
  13. IMITREX [Concomitant]
     Active Substance: SUMATRIPTAN SUCCINATE
     Indication: MIGRAINE
     Dosage: 1 DF, PRN, MAY REPEAT IN 2 HOURS X 1, NOT TO BE TAKEN MORE THAN 2 DAYS PER WEEK
     Route: 048
     Dates: start: 20140905
  14. INSULIN [Concomitant]
     Active Substance: INSULIN NOS
     Dosage: WITH MEALS AND SNACKS
     Dates: start: 20130506
  15. ZENPEP [Concomitant]
     Active Substance: PANCRELIPASE AMYLASE\PANCRELIPASE LIPASE\PANCRELIPASE PROTEASE
     Dosage: 3 DF WITH MEALS AND 1 WITH SNACK
     Dates: start: 20150916
  16. FERROUS SULFATE [Concomitant]
     Active Substance: FERROUS SULFATE\FERROUS SULFATE, DRIED
     Dosage: 1 DF, QD
     Route: 048
     Dates: start: 20150421
  17. ORKAMBI [Suspect]
     Active Substance: IVACAFTOR\LUMACAFTOR
     Indication: CYSTIC FIBROSIS
     Dosage: 400/125MG, BID
     Route: 048
     Dates: start: 20150923, end: 20151001
  18. ZITHROMAX [Concomitant]
     Active Substance: AZITHROMYCIN DIHYDRATE
     Dosage: 1 DF MONDAY, WEDNESDAY AND FRIDAY
     Route: 048
     Dates: start: 20150424
  19. OSCAL [Concomitant]
     Active Substance: CALCIUM CARBONATE
     Dosage: 1 DF, TID
     Route: 048
     Dates: start: 20150421
  20. POLYETHYLENE GLYCOL [Concomitant]
     Active Substance: POLYETHYLENE GLYCOLS
     Dosage: UNK
     Dates: start: 20140605

REACTIONS (6)
  - Dyspnoea [Unknown]
  - Pulmonary function test decreased [Recovered/Resolved]
  - Infective pulmonary exacerbation of cystic fibrosis [Unknown]
  - Respiration abnormal [Unknown]
  - Pyrexia [Unknown]
  - Mucosal discolouration [Not Recovered/Not Resolved]

NARRATIVE: CASE EVENT DATE: 20151209
